FAERS Safety Report 7075174-7 (Version None)
Quarter: 2010Q4

REPORT INFORMATION
  Report Type: 
  Country: None (occurrence: None)
  Receive Date: 20101029
  Receipt Date: 20100628
  Transmission Date: 20110411
  Serious: No
  Sender: FDA-Public Use
  Company Number: US-WYE-H15410010

PATIENT
  Age: 65 Year
  Sex: Female
  Weight: 57.2 kg

DRUGS (2)
  1. ADVIL PM [Suspect]
     Indication: ANALGESIC THERAPY
     Dosage: 1 CAPLET ONCE
     Route: 048
     Dates: start: 20100524, end: 20100524
  2. SYNTHROID [Concomitant]

REACTIONS (3)
  - EYE SWELLING [None]
  - RASH ERYTHEMATOUS [None]
  - RASH PRURITIC [None]
